FAERS Safety Report 5366433-4 (Version None)
Quarter: 2007Q2

REPORT INFORMATION
  Report Type: 
  Country: None (occurrence: None)
  Receive Date: 20070622
  Receipt Date: 20070615
  Transmission Date: 20071010
  Serious: Yes (Other)
  Sender: FDA-Public Use
  Company Number: PHEH2007US08815

PATIENT
  Age: 61 Year
  Sex: Female

DRUGS (3)
  1. ZELNORM [Suspect]
     Indication: IRRITABLE BOWEL SYNDROME
     Dosage: 6 MG, BID
     Dates: start: 20050101, end: 20070401
  2. EFFEXOR [Concomitant]
  3. VALTREX [Concomitant]

REACTIONS (5)
  - CARDIAC STRESS TEST ABNORMAL [None]
  - CARPAL TUNNEL SYNDROME [None]
  - CATHETERISATION CARDIAC NORMAL [None]
  - ELECTROCARDIOGRAM ABNORMAL [None]
  - PALPITATIONS [None]
